FAERS Safety Report 8533311-9 (Version None)
Quarter: 2012Q3

REPORT INFORMATION
  Report Type: 
  Country: None (occurrence: None)
  Receive Date: 20120717
  Receipt Date: 20120717
  Transmission Date: 20120928
  Serious: Yes (Other)
  Sender: FDA-Public Use
  Company Number: None

PATIENT
  Sex: Female
  Weight: 57.1532 kg

DRUGS (1)
  1. LEVOFLOXACIN [Suspect]
     Indication: SINUSITIS
     Dosage: 1 TABLET 1 A DAY PO
     Route: 048
     Dates: start: 20120711, end: 20120713

REACTIONS (7)
  - ARTHRALGIA [None]
  - PAIN [None]
  - ABASIA [None]
  - MUSCULOSKELETAL PAIN [None]
  - MOVEMENT DISORDER [None]
  - BACK PAIN [None]
  - INSOMNIA [None]
